FAERS Safety Report 10162744 (Version 3)
Quarter: 2014Q3

REPORT INFORMATION
  Report Type: Spontaneous
  Country: US (occurrence: US)
  Receive Date: 20140509
  Receipt Date: 20140714
  Transmission Date: 20150326
  Serious: Yes (Other)
  Sender: FDA-Public Use
  Company Number: US-PFIZER INC-2014127340

PATIENT
  Age: 48 Year
  Sex: Male
  Weight: 81.63 kg

DRUGS (2)
  1. NABUMETONE. [Concomitant]
     Active Substance: NABUMETONE
     Indication: INFLAMMATION
     Dosage: 750 MG, 2X/DAY
     Route: 048
  2. LYRICA [Suspect]
     Active Substance: PREGABALIN
     Indication: DIABETIC NEUROPATHY
     Dosage: 75 MG, SOMETIMES TWO CAPSULES AND SOMETIMES FOUR CAPSULES
     Route: 048
     Dates: start: 2009

REACTIONS (2)
  - Back disorder [Unknown]
  - Intentional product misuse [Unknown]

NARRATIVE: CASE EVENT DATE: 201401
